FAERS Safety Report 7146093-2 (Version None)
Quarter: 2010Q4

REPORT INFORMATION
  Report Type: 
  Country: None (occurrence: None)
  Receive Date: 20101208
  Receipt Date: 20101110
  Transmission Date: 20110411
  Serious: Yes (Death)
  Sender: FDA-Public Use
  Company Number: JP-MERCK-1011USA01714

PATIENT
  Age: 68 Year
  Sex: Male

DRUGS (2)
  1. DECADRON [Suspect]
     Indication: CARDIAC AMYLOIDOSIS
     Route: 048
     Dates: start: 20090401
  2. VELCADE [Concomitant]
     Route: 042
     Dates: start: 20090401

REACTIONS (1)
  - SEPSIS [None]
